FAERS Safety Report 6815102-X (Version None)
Quarter: 2010Q3

REPORT INFORMATION
  Report Type: 
  Country: None (occurrence: None)
  Receive Date: 20100702
  Receipt Date: 20100625
  Transmission Date: 20110219
  Serious: Yes (Other)
  Sender: FDA-Public Use
  Company Number: FR-AMGEN-KDL416336

PATIENT
  Sex: Male
  Weight: 70 kg

DRUGS (1)
  1. VECTIBIX [Suspect]
     Indication: COLORECTAL CANCER
     Route: 042
     Dates: start: 20100525

REACTIONS (4)
  - DERMATITIS ACNEIFORM [None]
  - ERYTHROSIS [None]
  - SKIN REACTION [None]
  - XEROSIS [None]
